FAERS Safety Report 11809006 (Version 1)
Quarter: 2015Q4

REPORT INFORMATION
  Report Type: Spontaneous
  Country: DE (occurrence: CA)
  Receive Date: 20151207
  Receipt Date: 20151207
  Transmission Date: 20160305
  Serious: No
  Sender: FDA-Public Use
  Company Number: CA-MERZ NORTH AMERICA, INC.-15MRZ-00669

PATIENT

DRUGS (1)
  1. XEOMIN [Suspect]
     Active Substance: INCOBOTULINUMTOXINA
     Indication: OFF LABEL USE
     Dosage: 100 UNITS INTO POSTERIOR TIBIALIS UPPER EXTREMITY
     Dates: start: 201511, end: 201511

REACTIONS (2)
  - Off label use [None]
  - Deep vein thrombosis [None]
